FAERS Safety Report 24969349 (Version 1)
Quarter: 2025Q1

REPORT INFORMATION
  Report Type: Spontaneous
  Country: PT (occurrence: PT)
  Receive Date: 20250214
  Receipt Date: 20250214
  Transmission Date: 20250409
  Serious: Yes (Hospitalization, Other)
  Sender: HIKMA
  Company Number: PT-HIKMA PHARMACEUTICALS USA INC.-PT-H14001-25-01277

PATIENT
  Age: 80 Year
  Sex: Female

DRUGS (1)
  1. CEFTRIAXONE [Suspect]
     Active Substance: CEFTRIAXONE
     Indication: Mumps
     Route: 065

REACTIONS (1)
  - Angioedema [Unknown]
